FAERS Safety Report 10226563 (Version 2)
Quarter: 2014Q2

REPORT INFORMATION
  Report Type: Spontaneous
  Country: US (occurrence: US)
  Receive Date: 20140609
  Receipt Date: 20140609
  Transmission Date: 20141212
  Serious: No
  Sender: FDA-Public Use
  Company Number: US-AMGEN INC.-USASP2014005238

PATIENT
  Age: 85 Year
  Sex: Male

DRUGS (2)
  1. PROCRIT [Suspect]
     Indication: PRODUCT USED FOR UNKNOWN INDICATION
     Dosage: 25000 OR 50000 UNITS TWICE MONTHLY
     Route: 042
     Dates: start: 20090515
  2. AMLODIPINE BESYLATE [Concomitant]
     Dosage: 5 MG, UNK

REACTIONS (2)
  - Hypoacusis [Unknown]
  - Night sweats [Not Recovered/Not Resolved]
